FAERS Safety Report 16037855 (Version 1)
Quarter: 2019Q1

REPORT INFORMATION
  Report Type: Spontaneous
  Country: GB (occurrence: GB)
  Receive Date: 20190305
  Receipt Date: 20190305
  Transmission Date: 20190418
  Serious: Yes (Hospitalization, Other)
  Sender: FDA-Public Use
  Company Number: GB-MYLANLABS-2019M1018965

PATIENT
  Sex: Female

DRUGS (4)
  1. SINEMET-PLUS [Suspect]
     Active Substance: CARBIDOPA\LEVODOPA
     Indication: PARKINSON^S DISEASE
     Dosage: UNK
     Route: 065
  2. LANSOPRAZOLE. [Suspect]
     Active Substance: LANSOPRAZOLE
     Indication: PARKINSON^S DISEASE
     Dosage: UNK
     Route: 065
  3. RASAGILINE MESILATE [Suspect]
     Active Substance: RASAGILINE MESYLATE
     Indication: PARKINSON^S DISEASE
     Route: 048
  4. PRAMIPEXOLE. [Suspect]
     Active Substance: PRAMIPEXOLE
     Indication: PARKINSON^S DISEASE
     Dosage: UNK
     Route: 065

REACTIONS (5)
  - Pulmonary embolism [Recovered/Resolved]
  - Dyspnoea [Unknown]
  - Product use in unapproved indication [Unknown]
  - Pulmonary hypertension [Unknown]
  - Malaise [Unknown]

NARRATIVE: CASE EVENT DATE: 201703
